FAERS Safety Report 18971348 (Version 1)
Quarter: 2021Q1

REPORT INFORMATION
  Report Type: Spontaneous
  Country: US (occurrence: US)
  Receive Date: 20210304
  Receipt Date: 20210304
  Transmission Date: 20210420
  Serious: Yes (Death, Other)
  Sender: FDA-Public Use
  Company Number: US-BRISTOL-MYERS SQUIBB COMPANY-BMS-2021-021245

PATIENT
  Sex: Male

DRUGS (2)
  1. OPDIVO [Suspect]
     Active Substance: NIVOLUMAB
     Indication: SARCOMA
     Dosage: 480 MILLIGRAM, Q3WK
     Route: 042
     Dates: start: 20201018
  2. YERVOY [Suspect]
     Active Substance: IPILIMUMAB
     Indication: SARCOMA
     Dosage: 80 MILLIGRAM, Q3WK
     Route: 042
     Dates: start: 20201018

REACTIONS (2)
  - Death [Fatal]
  - Intentional product use issue [Unknown]
